FAERS Safety Report 25881222 (Version 1)
Quarter: 2025Q4

REPORT INFORMATION
  Report Type: Spontaneous
  Country: GB (occurrence: GB)
  Receive Date: 20251004
  Receipt Date: 20251004
  Transmission Date: 20260118
  Serious: Yes (Hospitalization, Other)
  Sender: AMGEN
  Company Number: GB-AMGEN-GBRSP2025195648

PATIENT

DRUGS (1)
  1. ADALIMUMAB [Suspect]
     Active Substance: ADALIMUMAB
     Indication: Colitis ulcerative
     Dosage: UNK UNK, Q2WK
     Route: 065

REACTIONS (5)
  - Surgery [Unknown]
  - Colitis ulcerative [Unknown]
  - Therapy non-responder [Unknown]
  - Loss of therapeutic response [Unknown]
  - Off label use [Unknown]
